FAERS Safety Report 9216098 (Version 1)
Quarter: 2013Q2

REPORT INFORMATION
  Report Type: Spontaneous
  Country: US (occurrence: US)
  Receive Date: 20130408
  Receipt Date: 20130408
  Transmission Date: 20140414
  Serious: Yes (Other)
  Sender: FDA-Public Use
  Company Number: US-AMGEN-USASP2013022027

PATIENT
  Age: 60 Year
  Sex: Male
  Weight: 95.24 kg

DRUGS (14)
  1. ENBREL [Suspect]
     Indication: PRODUCT USED FOR UNKNOWN INDICATION
     Dosage: 50 MG, QWK
     Route: 058
  2. PLAVIX [Concomitant]
     Dosage: 75 MG, UNK
  3. SKELAXIN                           /00611501/ [Concomitant]
     Dosage: 800 MG, UNK
  4. POTASSIUM [Concomitant]
     Dosage: 25 MEQ, UNK
  5. TRIAMTERENE AND HYDROCHLOROTHIAZIDE [Concomitant]
     Dosage: 75-50 MG
  6. SIMVASTATIN [Concomitant]
     Dosage: 5 MG, UNK
  7. FLOMAX                             /00889901/ [Concomitant]
     Dosage: 0.4 MG, UNK
  8. FERROUS SULFATE [Concomitant]
     Dosage: 325 MG, UNK
  9. VITAMIN C                          /00008001/ [Concomitant]
     Dosage: 500 MG, UNK
  10. VITAMIN D /00107901/ [Concomitant]
     Dosage: 400 UNIT, UNK
  11. PREDNISONE [Concomitant]
     Dosage: 1 MG, UNK
  12. FISH OIL [Concomitant]
     Dosage: UNK
  13. PROBIOTIC                          /06395501/ [Concomitant]
     Dosage: UNK
  14. MULTIVITAMINS, PLAIN [Concomitant]
     Dosage: UNK

REACTIONS (1)
  - Ear neoplasm [Recovered/Resolved]
